FAERS Safety Report 7660711-1 (Version None)
Quarter: 2011Q3

REPORT INFORMATION
  Report Type: 
  Country: None (occurrence: None)
  Receive Date: 20110805
  Receipt Date: 20101123
  Transmission Date: 20111222
  Serious: No
  Sender: FDA-Public Use
  Company Number: US-ABBOTT-10P-163-0687262-00

PATIENT
  Sex: Female
  Weight: 75.364 kg

DRUGS (5)
  1. FLOUXETINE [Concomitant]
     Indication: PRODUCT USED FOR UNKNOWN INDICATION
  2. ENABLEX [Concomitant]
     Indication: PRODUCT USED FOR UNKNOWN INDICATION
  3. BONIVA [Concomitant]
     Indication: PRODUCT USED FOR UNKNOWN INDICATION
  4. NIASPAN [Suspect]
     Indication: BLOOD CHOLESTEROL ABNORMAL
     Dates: start: 20100901
  5. TRAZODONE HCL [Concomitant]
     Indication: PRODUCT USED FOR UNKNOWN INDICATION

REACTIONS (4)
  - PRURITUS [None]
  - ERYTHEMA [None]
  - HEART RATE INCREASED [None]
  - FLUSHING [None]
